FAERS Safety Report 5526950-0 (Version None)
Quarter: 2007Q4

REPORT INFORMATION
  Report Type: 
  Country: None (occurrence: None)
  Receive Date: 20071127
  Receipt Date: 20071115
  Transmission Date: 20080405
  Serious: Yes (Hospitalization, Other)
  Sender: FDA-Public Use
  Company Number: US-PFIZER INC-2007096802

PATIENT
  Sex: Female
  Weight: 83.5 kg

DRUGS (3)
  1. DILANTIN [Suspect]
     Indication: TEMPORAL LOBE EPILEPSY
  2. ACETYLSALICYLIC ACID SRT [Suspect]
  3. TOPROL-XL [Suspect]
     Indication: BLOOD PRESSURE

REACTIONS (15)
  - ACTIVITIES OF DAILY LIVING IMPAIRED [None]
  - ANTICONVULSANT DRUG LEVEL DECREASED [None]
  - APPENDICECTOMY [None]
  - BODY HEIGHT DECREASED [None]
  - CHOLECYSTECTOMY [None]
  - COMPULSIONS [None]
  - HEADACHE [None]
  - HEART RATE IRREGULAR [None]
  - HYSTERECTOMY [None]
  - INSOMNIA [None]
  - OOPHORECTOMY [None]
  - PSYCHOMOTOR HYPERACTIVITY [None]
  - SUPRAVENTRICULAR EXTRASYSTOLES [None]
  - SWELLING FACE [None]
  - VENTRICULAR EXTRASYSTOLES [None]
